FAERS Safety Report 21915679 (Version 2)
Quarter: 2023Q1

REPORT INFORMATION
  Report Type: Spontaneous
  Country: JP (occurrence: JP)
  Receive Date: 20230126
  Receipt Date: 20230131
  Transmission Date: 20230418
  Serious: No
  Sender: FDA-Public Use
  Company Number: JP-MLMSERVICE-20230119-4051912-1

PATIENT
  Age: 72 Year
  Sex: Male

DRUGS (4)
  1. METHYLPREDNISOLONE SODIUM SUCCINATE [Suspect]
     Active Substance: METHYLPREDNISOLONE SODIUM SUCCINATE
     Indication: Colitis
     Dosage: 500 MG, 1X/DAY
     Route: 042
     Dates: start: 2021, end: 2021
  2. PREDNISOLONE [Suspect]
     Active Substance: PREDNISOLONE
     Indication: Colitis
     Dosage: 40 MG, 1X/DAY
     Route: 048
     Dates: start: 2021, end: 2021
  3. PREDNISOLONE [Suspect]
     Active Substance: PREDNISOLONE
     Dosage: 80 MG, 1X/DAY, ON THE 11TH DAY
     Route: 048
     Dates: start: 2021, end: 2021
  4. CEFMETAZOLE [Concomitant]
     Active Substance: CEFMETAZOLE
     Indication: Colitis
     Dosage: 4 G, DAILY, FROM DAY 1 OF HOSPITALIZATION TO DAY 7

REACTIONS (1)
  - Off label use [Unknown]
